FAERS Safety Report 9462972 (Version 3)
Quarter: 2013Q3

REPORT INFORMATION
  Report Type: Report from Study
  Country: DK (occurrence: DK)
  Receive Date: 20130816
  Receipt Date: 20130919
  Transmission Date: 20140515
  Serious: Yes (Hospitalization)
  Sender: FDA-Public Use
  Company Number: DK-ASTRAZENECA-2013SE61586

PATIENT
  Age: 28859 Day
  Sex: Male

DRUGS (11)
  1. AZD6140 [Suspect]
     Indication: ACUTE MYOCARDIAL INFARCTION
     Dosage: PRE-HOSP
     Route: 048
     Dates: start: 20130711, end: 20130711
  2. AZD6140 [Suspect]
     Indication: ACUTE MYOCARDIAL INFARCTION
     Dosage: ACTIVE TREATMENT
     Route: 048
     Dates: start: 20130711
  3. ASPIRIN [Concomitant]
     Route: 048
     Dates: start: 20130711, end: 20130711
  4. ASPIRIN [Concomitant]
     Route: 048
     Dates: start: 20130712
  5. OXAZEPAM [Concomitant]
     Route: 048
  6. PANTOPRAZOL [Concomitant]
     Route: 042
     Dates: start: 20130711, end: 20130711
  7. PANTOPRAZOL [Concomitant]
     Route: 048
     Dates: start: 20130712
  8. ATORVASTATIN [Concomitant]
     Route: 048
     Dates: start: 20130711
  9. METOPROLOL SUCCINATE [Concomitant]
     Route: 048
     Dates: start: 20130711
  10. RAMIPRIL [Concomitant]
     Route: 048
     Dates: start: 20130711
  11. NITROGLYCERIN [Concomitant]
     Route: 060
     Dates: start: 20130711

REACTIONS (1)
  - Dehydration [Recovered/Resolved]
